FAERS Safety Report 10898917 (Version 2)
Quarter: 2015Q1

REPORT INFORMATION
  Report Type: Spontaneous
  Country: IT (occurrence: IT)
  Receive Date: 20150309
  Receipt Date: 20150312
  Transmission Date: 20150721
  Serious: Yes (Other)
  Sender: FDA-Public Use
  Company Number: IT-GILEAD-2015-0140968

PATIENT
  Age: 68 Year
  Sex: Male

DRUGS (4)
  1. SOVALDI [Suspect]
     Active Substance: SOFOSBUVIR
     Indication: CHRONIC HEPATITIS C
     Dosage: 1 DF, UNK
     Route: 048
     Dates: start: 20150201
  2. LANSOPRAZOL [Concomitant]
     Active Substance: LANSOPRAZOLE
  3. DIBASE [Concomitant]
     Active Substance: CHOLECALCIFEROL
  4. REBETOL [Suspect]
     Active Substance: RIBAVIRIN
     Indication: CHRONIC HEPATITIS C
     Dosage: 7 DF, UNK
     Route: 048
     Dates: start: 20150202

REACTIONS (4)
  - Back pain [Not Recovered/Not Resolved]
  - Irritability [Not Recovered/Not Resolved]
  - Migraine [Not Recovered/Not Resolved]
  - Depression [Not Recovered/Not Resolved]

NARRATIVE: CASE EVENT DATE: 20150202
